FAERS Safety Report 4760622-5 (Version None)
Quarter: 2005Q3

REPORT INFORMATION
  Report Type: 
  Country: None (occurrence: None)
  Receive Date: 20050826
  Receipt Date: 20050201
  Transmission Date: 20060218
  Serious: Yes (Death)
  Sender: FDA-Public Use
  Company Number: USA-2005-0018692

PATIENT
  Age: 16 Year
  Sex: Female

DRUGS (3)
  1. OXYCONTIN [Suspect]
  2. METHADONE HCL [Suspect]
  3. ALPRAZOLAM [Suspect]

REACTIONS (2)
  - ACCIDENTAL OVERDOSE [None]
  - MULTIPLE DRUG OVERDOSE [None]
